FAERS Safety Report 14340291 (Version 1)
Quarter: 2018Q1

REPORT INFORMATION
  Report Type: Spontaneous
  Country: JP (occurrence: JP)
  Receive Date: 20180101
  Receipt Date: 20180101
  Transmission Date: 20180509
  Serious: Yes (Other)
  Sender: FDA-Public Use
  Company Number: JP-ROCHE-2044972

PATIENT
  Age: 29 Year
  Sex: Female

DRUGS (7)
  1. UFT [Concomitant]
     Active Substance: TEGAFUR\URACIL
     Indication: COLORECTAL CANCER STAGE I
  2. BEVACIZUMAB. [Suspect]
     Active Substance: BEVACIZUMAB
     Indication: COLORECTAL CANCER METASTATIC
     Route: 065
  3. IRINOTECAN [Concomitant]
     Active Substance: IRINOTECAN
     Indication: COLORECTAL CANCER METASTATIC
  4. OXALIPLATIN. [Concomitant]
     Active Substance: OXALIPLATIN
     Indication: COLORECTAL CANCER METASTATIC
  5. FOLIC ACID. [Concomitant]
     Active Substance: FOLIC ACID
     Indication: COLORECTAL CANCER METASTATIC
  6. 5-FU [Concomitant]
     Active Substance: FLUOROURACIL
     Indication: COLORECTAL CANCER METASTATIC
  7. LEUCOVORIN. [Concomitant]
     Active Substance: LEUCOVORIN
     Indication: COLORECTAL CANCER STAGE I

REACTIONS (2)
  - Pulmonary fistula [Unknown]
  - Pneumothorax [Unknown]
